FAERS Safety Report 8521346-1 (Version None)
Quarter: 2012Q3

REPORT INFORMATION
  Report Type: 
  Country: None (occurrence: None)
  Receive Date: 20120719
  Receipt Date: 20120629
  Transmission Date: 20120928
  Serious: Yes (Life-Threatening, Hospitalization, Disabling)
  Sender: FDA-Public Use
  Company Number: HR-SANOFI-AVENTIS-200911259GDDC

PATIENT
  Age: 68 Year
  Sex: Male

DRUGS (8)
  1. LANTUS [Suspect]
     Indication: DIABETES MELLITUS
     Route: 058
     Dates: start: 20040205
  2. LACIDIPINE [Concomitant]
     Dates: start: 20070901
  3. OMEGA-3 POLYUNSATURATED FATTY ACID [Suspect]
     Route: 048
     Dates: start: 20040205
  4. FRUSEMIDE [Concomitant]
     Dates: start: 20031201
  5. CARVEDILOL [Concomitant]
     Indication: CORONARY ARTERY DISEASE
     Dates: start: 20060801
  6. ATORVASTATIN [Concomitant]
     Dates: start: 20031201
  7. OPTIPEN [Suspect]
     Indication: DIABETES MELLITUS
  8. ISOSORBIDE MONONITRATE [Concomitant]
     Indication: CORONARY ARTERY DISEASE
     Dates: start: 20060901

REACTIONS (1)
  - COLON CANCER [None]
